FAERS Safety Report 12102691 (Version 1)
Quarter: 2016Q1

REPORT INFORMATION
  Report Type: Spontaneous
  Country: US (occurrence: US)
  Receive Date: 20160222
  Receipt Date: 20160222
  Transmission Date: 20160526
  Serious: No
  Sender: FDA-Public Use
  Company Number: US-BRISTOL-MYERS SQUIBB COMPANY-10511426

PATIENT
  Age: 14 Year
  Sex: Female
  Weight: 136.5 kg

DRUGS (3)
  1. GLUCOPHAGE [Suspect]
     Active Substance: METFORMIN HYDROCHLORIDE
     Indication: TYPE 2 DIABETES MELLITUS
     Dosage: NON COMPLIANT WITH DIABETIC MEDICATION ^2 YEARS ON AND OFF^
     Route: 048
     Dates: start: 199906, end: 200009
  2. GLUCOPHAGE [Suspect]
     Active Substance: METFORMIN HYDROCHLORIDE
     Indication: OBESITY
  3. INSULIN [Concomitant]
     Active Substance: INSULIN NOS
     Indication: TYPE 2 DIABETES MELLITUS
     Route: 058

REACTIONS (6)
  - Caesarean section [Recovered/Resolved]
  - Gestational hypertension [Unknown]
  - Pregnancy [Recovered/Resolved]
  - Normal newborn [Unknown]
  - Urinary tract infection [Unknown]
  - Puerperal infection [Unknown]

NARRATIVE: CASE EVENT DATE: 199910
